FAERS Safety Report 11865439 (Version 1)
Quarter: 2015Q4

REPORT INFORMATION
  Report Type: Report from Study
  Country: CO (occurrence: CO)
  Receive Date: 20151223
  Receipt Date: 20151223
  Transmission Date: 20160305
  Serious: Yes (Death, Hospitalization)
  Sender: FDA-Public Use
  Company Number: CO-ABBVIE-15P-036-1525824-00

PATIENT
  Age: 25 Year
  Sex: Female

DRUGS (1)
  1. ZEMPLAR [Suspect]
     Active Substance: PARICALCITOL
     Indication: HYPERPARATHYROIDISM SECONDARY
     Dosage: POST DIALYSIS
     Route: 042
     Dates: start: 20140125, end: 20151120

REACTIONS (3)
  - Seizure [Fatal]
  - Pulmonary embolism [Fatal]
  - Femur fracture [Fatal]

NARRATIVE: CASE EVENT DATE: 20151126
